FAERS Safety Report 17098911 (Version 1)
Quarter: 2019Q4

REPORT INFORMATION
  Report Type: Spontaneous
  Country: US (occurrence: US)
  Receive Date: 20191202
  Receipt Date: 20191202
  Transmission Date: 20200122
  Serious: No
  Sender: FDA-Public Use
  Company Number: US-PFIZER INC-2019482659

PATIENT
  Age: 72 Year
  Sex: Female
  Weight: 54.42 kg

DRUGS (1)
  1. ZYVOX [Suspect]
     Active Substance: LINEZOLID
     Indication: MYCOBACTERIUM ABSCESSUS INFECTION
     Dosage: 600 MG, 2X/DAY (FOR OVER 28 DAYS)

REACTIONS (3)
  - Weight fluctuation [Unknown]
  - Off label use [Unknown]
  - Product use in unapproved indication [Unknown]
